FAERS Safety Report 7984075-9 (Version None)
Quarter: 2011Q4

REPORT INFORMATION
  Report Type: 
  Country: None (occurrence: None)
  Receive Date: 20111214
  Receipt Date: 20111202
  Transmission Date: 20120403
  Serious: Yes (Life-Threatening, Hospitalization, Disabling)
  Sender: FDA-Public Use
  Company Number: CRC-11-321

PATIENT
  Age: 53 Year
  Weight: 98 kg

DRUGS (4)
  1. LITHIUM CARBONATE [Suspect]
     Indication: BIPOLAR DISORDER
     Dosage: 600MG DAILY; ORAL
     Route: 048
  2. LOPERAMIDE [Concomitant]
  3. CLOZAPINE [Suspect]
     Indication: BIPOLAR DISORDER
     Dosage: 525 MG DAILY;ORAL
     Route: 048
  4. POLYETHYLENE GLYCOL [Concomitant]

REACTIONS (8)
  - PALPITATIONS [None]
  - ORTHOSTATIC HYPOTENSION [None]
  - RHYTHM IDIOVENTRICULAR [None]
  - BLOOD PRESSURE INCREASED [None]
  - ATRIOVENTRICULAR DISSOCIATION [None]
  - DISEASE RECURRENCE [None]
  - FALL [None]
  - BIPOLAR DISORDER [None]
